FAERS Safety Report 5983982-6 (Version None)
Quarter: 2008Q4

REPORT INFORMATION
  Report Type: 
  Country: None (occurrence: None)
  Receive Date: 20081208
  Receipt Date: 20081126
  Transmission Date: 20090506
  Serious: Yes (Other)
  Sender: FDA-Public Use
  Company Number: FR-ROCHE-600399

PATIENT
  Sex: Female

DRUGS (2)
  1. ZENAPAX [Suspect]
     Indication: POLYMYOSITIS
     Dosage: IT WAS REPORTED THAT PATIENT RECEIVED ZENAPAX AT 50MG/MONTH (1MG/KG) FIRST CYCLE:50 MGX3 FOR 3 DAYS.
     Route: 065
     Dates: start: 20050101
  2. DEXAMETHASONE [Concomitant]

REACTIONS (1)
  - THYROID DISORDER [None]
